FAERS Safety Report 6438856-3 (Version None)
Quarter: 2009Q4

REPORT INFORMATION
  Report Type: 
  Country: None (occurrence: None)
  Receive Date: 20091110
  Receipt Date: 20091026
  Transmission Date: 20100525
  Serious: Yes (Death, Life-Threatening, Hospitalization, Other)
  Sender: FDA-Public Use
  Company Number: PAR_03143_2009

PATIENT
  Sex: Male
  Weight: 84.369 kg

DRUGS (5)
  1. MEGACE ES [Suspect]
     Indication: CACHEXIA
     Dosage: (1 DF, QD, 625 MG/5ML)
  2. MEGESTROL ACETATE [Suspect]
     Indication: CACHEXIA
     Dosage: (800 MG QD, 40 MG/CC (ML) ORAL)
     Route: 048
  3. PROCARDIA XL [Concomitant]
  4. ALTACE [Concomitant]
  5. VYTORIN [Concomitant]

REACTIONS (8)
  - ANAEMIA [None]
  - LUNG CANCER METASTATIC [None]
  - MALIGNANT NEOPLASM PROGRESSION [None]
  - METASTASES TO CENTRAL NERVOUS SYSTEM [None]
  - OEDEMA PERIPHERAL [None]
  - PERFORMANCE STATUS DECREASED [None]
  - PNEUMONIA [None]
  - WEIGHT DECREASED [None]
